FAERS Safety Report 23385106 (Version 1)
Quarter: 2024Q1

REPORT INFORMATION
  Report Type: Other
  Country: US (occurrence: None)
  Receive Date: 20240109
  Receipt Date: 20240109
  Transmission Date: 20240410
  Serious: Yes (Death)
  Sender: FDA-Public Use
  Company Number: US-ROCHE-3485655

PATIENT
  Age: 60 Year
  Sex: Female

DRUGS (1)
  1. OCREVUS [Suspect]
     Active Substance: OCRELIZUMAB
     Indication: Relapsing multiple sclerosis
     Dosage: LAST INFUSION WAS ON 28/DEC/2022
     Route: 065
     Dates: start: 20180518, end: 20221228

REACTIONS (1)
  - Death [Fatal]

NARRATIVE: CASE EVENT DATE: 20240103
